FAERS Safety Report 4442815-X (Version None)
Quarter: 2004Q3

REPORT INFORMATION
  Report Type: 
  Country: None (occurrence: None)
  Receive Date: 20040903
  Receipt Date: 20040608
  Transmission Date: 20050211
  Serious: Yes (Other)
  Sender: FDA-Public Use
  Company Number: 2004UW11830

PATIENT
  Age: 62 Year
  Sex: Male
  Weight: 90.7194 kg

DRUGS (3)
  1. CRESTOR [Suspect]
     Indication: BLOOD CHOLESTEROL INCREASED
     Dosage: 10 MG DAILY PO
     Route: 048
     Dates: start: 20040603, end: 20040605
  2. ASPIRIN [Concomitant]
  3. ZETIA [Concomitant]

REACTIONS (2)
  - DISTURBANCE IN ATTENTION [None]
  - DYSPHORIA [None]
